FAERS Safety Report 5905733-3 (Version None)
Quarter: 2008Q4

REPORT INFORMATION
  Report Type: 
  Country: None (occurrence: None)
  Receive Date: 20081002
  Receipt Date: 20080922
  Transmission Date: 20090506
  Serious: Yes (Death, Hospitalization, Other)
  Sender: FDA-Public Use
  Company Number: US-PURDUE-USA_2008_0033943

PATIENT
  Age: 47 Year
  Sex: Female
  Weight: 111 kg

DRUGS (19)
  1. OXYCONTIN [Suspect]
     Indication: NECK PAIN
     Dosage: 20 MG, SEE TEXT
     Dates: start: 20000501
  2. ETHANOL [Suspect]
     Indication: ALCOHOL USE
  3. MORPHINE SULFATE [Suspect]
     Indication: DRUG USE FOR UNKNOWN INDICATION
  4. PERCOCET [Suspect]
     Indication: BREAKTHROUGH PAIN
     Dosage: 10 MG, QID
  5. VIOXX [Concomitant]
     Dosage: 25 MG, BID
  6. ENDOCET [Concomitant]
     Dosage: 10 MG, QID PRN
  7. INDERAL                            /00030002/ [Concomitant]
     Dosage: 80 MG, BID
  8. PROVIGIL [Concomitant]
     Dosage: 200 MG, UNK
  9. EFFEXOR                            /01233802/ [Concomitant]
     Dosage: 75 MG, UNK
  10. ALPRAZOLAM [Concomitant]
     Dosage: 4 MG, UNK
  11. LIDODERM [Concomitant]
     Route: 062
  12. LEVOXYL [Concomitant]
     Dosage: 5 MG, DAILY
  13. SOMA [Concomitant]
     Dosage: 350 MG, UNK
  14. IMITREX                            /01044802/ [Concomitant]
     Dosage: 10 MG, UNK
  15. SYNTHROID [Concomitant]
     Dosage: .05 MG, UNK
  16. AKA XENCIL [Concomitant]
  17. ZANAFLEX [Concomitant]
  18. ZANTAC                             /00550802/ [Concomitant]
     Dosage: 300 UNK, BID
  19. AMITRIPTYLINE HCL [Concomitant]
     Indication: DRUG USE FOR UNKNOWN INDICATION
     Dosage: UNK MG, UNK
     Route: 048

REACTIONS (41)
  - ACCIDENTAL OVERDOSE [None]
  - ANGER [None]
  - ANTEPARTUM HAEMORRHAGE [None]
  - ARTHRALGIA [None]
  - BACK PAIN [None]
  - BLOOD PRESSURE INCREASED [None]
  - BREAKTHROUGH PAIN [None]
  - CARDIO-RESPIRATORY ARREST [None]
  - CHEST PAIN [None]
  - CONSTIPATION [None]
  - CONTUSION [None]
  - CONVULSION [None]
  - DECREASED INTEREST [None]
  - DEPRESSION [None]
  - DRUG ABUSE [None]
  - DRUG DEPENDENCE [None]
  - DRUG EXPOSURE DURING PREGNANCY [None]
  - DRUG INEFFECTIVE [None]
  - DYSPNOEA EXERTIONAL [None]
  - FALL [None]
  - FATIGUE [None]
  - GAIT DISTURBANCE [None]
  - GENERAL PHYSICAL HEALTH DETERIORATION [None]
  - HYPERSOMNIA [None]
  - INADEQUATE ANALGESIA [None]
  - INTERVERTEBRAL DISC PROTRUSION [None]
  - LETHARGY [None]
  - LISTLESS [None]
  - LOSS OF CONSCIOUSNESS [None]
  - MALAISE [None]
  - NAUSEA [None]
  - NECK PAIN [None]
  - OEDEMA [None]
  - PERSONALITY CHANGE [None]
  - SCIATICA [None]
  - SEDATION [None]
  - SKIN LACERATION [None]
  - SPINAL OSTEOARTHRITIS [None]
  - SUICIDAL IDEATION [None]
  - VOMITING [None]
  - WEIGHT INCREASED [None]
